FAERS Safety Report 5370988-3 (Version None)
Quarter: 2007Q2

REPORT INFORMATION
  Report Type: 
  Country: None (occurrence: None)
  Receive Date: 20070626
  Receipt Date: 20070615
  Transmission Date: 20071010
  Serious: Yes (Other)
  Sender: FDA-Public Use
  Company Number: JP-PFIZER INC-2007041048

PATIENT
  Sex: Female
  Weight: 49 kg

DRUGS (5)
  1. NORVASC [Suspect]
     Indication: HYPERTENSION
     Dosage: DAILY DOSE:2.5MG
     Route: 048
     Dates: start: 20070308, end: 20070518
  2. VESICARE [Suspect]
     Indication: HYPERTONIC BLADDER
     Route: 048
     Dates: start: 20061101, end: 20070517
  3. LOXONIN [Suspect]
     Indication: SPINAL OSTEOARTHRITIS
     Route: 048
     Dates: start: 20070308, end: 20070312
  4. TERNELIN [Suspect]
     Indication: SPINAL OSTEOARTHRITIS
     Route: 048
     Dates: start: 20070308, end: 20070312
  5. SELBEX [Suspect]
     Route: 048
     Dates: start: 20070308, end: 20070312

REACTIONS (1)
  - PANCYTOPENIA [None]
